FAERS Safety Report 8457454-3 (Version None)
Quarter: 2012Q2

REPORT INFORMATION
  Report Type: 
  Country: None (occurrence: None)
  Receive Date: 20120621
  Receipt Date: 20120613
  Transmission Date: 20120825
  Serious: Yes (Hospitalization)
  Sender: FDA-Public Use
  Company Number: JP-MERCK-1206USA01063

PATIENT
  Age: 72 Year
  Sex: Female
  Weight: 50 kg

DRUGS (10)
  1. LENDORMIN [Concomitant]
     Route: 048
  2. PREDNISOLONE [Concomitant]
     Indication: ANTINEUTROPHIL CYTOPLASMIC ANTIBODY
     Route: 048
  3. BISOPROLOL FUMARATE [Concomitant]
     Route: 048
  4. BISOPROLOL FUMARATE [Concomitant]
     Dosage: GARGLE - OROPHARINGEAL
     Route: 065
  5. AMLODIPINE BESYLATE [Concomitant]
     Indication: HYPERTENSION
     Route: 048
  6. ISODINE [Concomitant]
     Dosage: OROPHARYNGEAL GARGLE
     Route: 048
  7. COTRIM [Suspect]
     Route: 048
     Dates: start: 20120401, end: 20120518
  8. FOSAMAX [Suspect]
     Indication: OSTEOPOROSIS
     Route: 048
     Dates: start: 20120514, end: 20120514
  9. RABEPRAZOLE SODIUM [Suspect]
     Route: 048
     Dates: start: 20120401, end: 20120518
  10. FUNGIZONE [Concomitant]
     Route: 048

REACTIONS (1)
  - WHITE BLOOD CELL COUNT DECREASED [None]
